FAERS Safety Report 4325679-4 (Version None)
Quarter: 2004Q1

REPORT INFORMATION
  Report Type: 
  Country: None (occurrence: None)
  Receive Date: 20040323
  Receipt Date: 20040310
  Transmission Date: 20041129
  Serious: Yes (Death)
  Sender: FDA-Public Use
  Company Number: 205185

PATIENT
  Age: 80 Year
  Sex: Female
  Weight: 50.9 kg

DRUGS (12)
  1. BEVACIZUMAB (BEVACIZUMAB) PWDR + SOLVENT, INFUSION SOLN, 100MG [Suspect]
     Indication: COLORECTAL CANCER METASTATIC
     Dosage: 7.5 MG/KG, Q3W, INTRAVENOUS
     Route: 042
     Dates: start: 20040220, end: 20040220
  2. OXALIPLATIN (OXALIPLATIN) [Suspect]
     Indication: COLORECTAL CANCER METASTATIC
     Dosage: 130 MG/M2, QD, ORAL
     Route: 048
     Dates: start: 20040220, end: 20040220
  3. CAPECITABINE (CAPECITABINE) [Suspect]
     Indication: COLORECTAL CANCER METASTATIC
     Dosage: 1000 MG/M2, QD, ORAL
     Route: 048
     Dates: start: 20040220, end: 20040305
  4. ATENOLOL [Concomitant]
  5. ADALAT [Concomitant]
  6. ACCUPRIL [Concomitant]
  7. COLESTID [Concomitant]
  8. PEPCID [Concomitant]
  9. CALCIUM (CALCIUM NOS) [Concomitant]
  10. CENTRUM (MINERALS NOS, MULTIVITAMINS NOS) [Concomitant]
  11. ASPIRIN [Concomitant]
  12. FOSAMAX [Concomitant]

REACTIONS (12)
  - ARRHYTHMIA [None]
  - ASTHENIA [None]
  - BLOOD CHLORIDE DECREASED [None]
  - BLOOD GLUCOSE INCREASED [None]
  - BLOOD POTASSIUM DECREASED [None]
  - BLOOD SODIUM DECREASED [None]
  - CANDIDIASIS [None]
  - CARDIAC DISORDER [None]
  - DIARRHOEA [None]
  - LOSS OF CONSCIOUSNESS [None]
  - NAUSEA [None]
  - TREATMENT NONCOMPLIANCE [None]
